FAERS Safety Report 25715659 (Version 1)
Quarter: 2025Q3

REPORT INFORMATION
  Report Type: Spontaneous
  Country: US (occurrence: None)
  Receive Date: 20250822
  Receipt Date: 20250822
  Transmission Date: 20251020
  Serious: Yes (Hospitalization)
  Sender: FDA-CTU
  Company Number: None

PATIENT
  Age: 42 Year
  Sex: Male
  Weight: 87.3 kg

DRUGS (2)
  1. CYTARABINE [Suspect]
     Active Substance: CYTARABINE
     Dates: end: 20250815
  2. DAUNORUBICIN [Suspect]
     Active Substance: DAUNORUBICIN
     Dates: end: 20250815

REACTIONS (7)
  - Hypoxia [None]
  - Haematemesis [None]
  - Hypotension [None]
  - Acute kidney injury [None]
  - Febrile neutropenia [None]
  - Pancytopenia [None]
  - Respiratory failure [None]

NARRATIVE: CASE EVENT DATE: 20250814
